FAERS Safety Report 7442198-7 (Version None)
Quarter: 2011Q2

REPORT INFORMATION
  Report Type: 
  Country: None (occurrence: None)
  Receive Date: 20110428
  Receipt Date: 20110415
  Transmission Date: 20111010
  Serious: Yes (Other)
  Sender: FDA-Public Use
  Company Number: PHHY2011US31846

PATIENT
  Sex: Female

DRUGS (7)
  1. PROPRANOLOL HYDROCHLORIDE [Concomitant]
     Dosage: 160 MG, BID
     Route: 048
  2. VITAMIN D [Concomitant]
     Dosage: 1 TAB BID
     Route: 048
  3. NEXIUM [Concomitant]
     Dosage: 140 MG, BID
     Route: 048
  4. VITAMIN D [Concomitant]
     Dosage: 2000 IU, UNK
     Route: 048
     Dates: start: 20100707
  5. CALCIUM [Concomitant]
     Route: 048
  6. RECLAST [Suspect]
     Indication: OSTEOPOROSIS
     Dosage: 5 MG,
     Route: 042
     Dates: start: 20101215
  7. CELEBREX [Concomitant]
     Dosage: 1 CAPSULE BID
     Route: 048

REACTIONS (2)
  - OVARIAN CYST [None]
  - HAEMATURIA [None]
